FAERS Safety Report 4673749-3 (Version None)
Quarter: 2005Q2

REPORT INFORMATION
  Report Type: 
  Country: None (occurrence: None)
  Receive Date: 20050524
  Receipt Date: 20050516
  Transmission Date: 20051028
  Serious: Yes (Other)
  Sender: FDA-Public Use
  Company Number: 2005076147

PATIENT
  Age: 75 Year
  Sex: Male
  Weight: 70 kg

DRUGS (4)
  1. ATORVASTATIN CALCIUM [Suspect]
     Indication: TRANSIENT ISCHAEMIC ATTACK
     Dosage: (10 MG),ORAL
     Route: 048
     Dates: start: 20031201, end: 20040427
  2. ADCAL-D3              (CALCIUM CARBONATE, COLECALCIFEROL) [Concomitant]
  3. ALENDRONIC ACID                (ALENDRONIC ACID) [Concomitant]
  4. SILDENAFIL CITRATE [Concomitant]

REACTIONS (2)
  - MUSCULAR WEAKNESS [None]
  - TENDONITIS [None]
